FAERS Safety Report 7651455-0 (Version None)
Quarter: 2011Q3

REPORT INFORMATION
  Report Type: 
  Country: None (occurrence: None)
  Receive Date: 20110802
  Receipt Date: 20110727
  Transmission Date: 20111222
  Serious: Yes (Life-Threatening, Hospitalization, Other)
  Sender: FDA-Public Use
  Company Number: PHHY2011HR68085

PATIENT
  Age: 64 Year
  Sex: Female

DRUGS (10)
  1. ATORIS [Concomitant]
     Dosage: 1 DF, UNK
     Route: 048
  2. LOSARTAN POTASSIUM [Concomitant]
     Dosage: 1 DF, UNK
     Route: 048
  3. PROPAFENONE HCL [Concomitant]
     Dosage: 2 DF, UNK
     Route: 048
  4. FUROSEMIDE [Concomitant]
  5. NSAID'S [Concomitant]
  6. VOLTAREN [Suspect]
     Indication: MUSCULOSKELETAL PAIN
     Dosage: 8 DF, UNK
     Route: 048
  7. THEOPHYLLINE [Interacting]
     Dosage: 2 PER 3 DAYS
  8. ANDOL [Interacting]
     Dosage: 100 MG, UNK
     Route: 048
  9. LEVOTHYROXINE SODIUM [Concomitant]
  10. KALINOR [Concomitant]

REACTIONS (9)
  - GASTRIC NEOPLASM [None]
  - TUMOUR HAEMORRHAGE [None]
  - GASTRIC HAEMORRHAGE [None]
  - ABDOMINAL PAIN UPPER [None]
  - VOMITING [None]
  - HAEMORRHAGIC ANAEMIA [None]
  - FAECES DISCOLOURED [None]
  - DRUG INTERACTION [None]
  - OVERDOSE [None]
